FAERS Safety Report 4342708-2 (Version None)
Quarter: 2004Q2

REPORT INFORMATION
  Report Type: 
  Country: None (occurrence: None)
  Receive Date: 20040416
  Receipt Date: 20040331
  Transmission Date: 20050107
  Serious: Yes (Hospitalization)
  Sender: FDA-Public Use
  Company Number: DSA_24176_2004

PATIENT
  Age: 32 Year
  Sex: Female

DRUGS (4)
  1. LORAZEPAM [Suspect]
     Dates: start: 20040325, end: 20040325
  2. CIPRAMIL [Suspect]
     Dates: start: 20040325, end: 20040325
  3. ROHYPNOL [Suspect]
     Dates: start: 20040325, end: 20040325
  4. STANGYL [Suspect]
     Dates: start: 20040325, end: 20040325

REACTIONS (4)
  - INTENTIONAL OVERDOSE [None]
  - MULTIPLE DRUG OVERDOSE [None]
  - MYDRIASIS [None]
  - SOMNOLENCE [None]
